FAERS Safety Report 10892144 (Version 6)
Quarter: 2021Q1

REPORT INFORMATION
  Report Type: Spontaneous
  Country: BR (occurrence: BR)
  Receive Date: 20150306
  Receipt Date: 20210312
  Transmission Date: 20210419
  Serious: Yes (Other)
  Sender: FDA-Public Use
  Company Number: BR-PFIZER INC-2015066448

PATIENT
  Age: 75 Year
  Sex: Male

DRUGS (6)
  1. XALACOM [Suspect]
     Active Substance: LATANOPROST\TIMOLOL MALEATE
     Indication: GLAUCOMA
     Dosage: ONE DROP EACH EYE DAILY AT NIGHT
     Route: 047
     Dates: start: 2011
  2. DIOVAN [Concomitant]
     Active Substance: VALSARTAN
     Indication: BLOOD PRESSURE ABNORMAL
     Dosage: UNK
  3. XALATAN [Suspect]
     Active Substance: LATANOPROST
     Indication: GLAUCOMA
     Dosage: ONE DROP EACH EYE DAILY IN THE MORNING
     Route: 047
  4. XALATAN [Suspect]
     Active Substance: LATANOPROST
     Dosage: ONE DROP EACH EYE, USED ONLY ONE DAY
     Route: 047
     Dates: start: 201502, end: 201502
  5. XALACOM [Suspect]
     Active Substance: LATANOPROST\TIMOLOL MALEATE
     Dosage: UNK
  6. AAS [Concomitant]
     Active Substance: ASPIRIN
     Dosage: UNK, ALTERNATE DAY

REACTIONS (3)
  - Blood cholesterol increased [Recovered/Resolved]
  - Diabetes mellitus [Not Recovered/Not Resolved]
  - Product dose omission issue [Recovered/Resolved]

NARRATIVE: CASE EVENT DATE: 201410
